FAERS Safety Report 4924234-2 (Version None)
Quarter: 2006Q1

REPORT INFORMATION
  Report Type: 
  Country: None (occurrence: None)
  Receive Date: 20060227
  Receipt Date: 20051227
  Transmission Date: 20060701
  Serious: No
  Sender: FDA-Public Use
  Company Number: US-GLAXOSMITHKLINE-A0587048A

PATIENT
  Age: 77 Year
  Sex: Male

DRUGS (6)
  1. WELLBUTRIN XL [Suspect]
     Indication: DEPRESSION
     Dosage: 150MG PER DAY
     Route: 048
  2. LORAZEPAM [Concomitant]
  3. ZOCOR [Concomitant]
  4. GLYBURIDE [Concomitant]
  5. ATENOLOL [Concomitant]
  6. LISINOPRIL [Concomitant]

REACTIONS (5)
  - DISTURBANCE IN ATTENTION [None]
  - DRUG ADMINISTRATION ERROR [None]
  - DRUG INEFFECTIVE [None]
  - NAUSEA [None]
  - NERVOUSNESS [None]
